FAERS Safety Report 4787219-5 (Version None)
Quarter: 2005Q3

REPORT INFORMATION
  Report Type: 
  Country: None (occurrence: None)
  Receive Date: 20050927
  Receipt Date: 20050624
  Transmission Date: 20060218
  Serious: No
  Sender: FDA-Public Use
  Company Number: USA0506101034

PATIENT
  Age: 47 Year
  Sex: Female

DRUGS (2)
  1. STRATTERA [Suspect]
     Indication: TRAUMATIC BRAIN INJURY
     Dosage: 40 MG
     Dates: start: 20050617
  2. ADDERALL XR 15 [Concomitant]

REACTIONS (5)
  - FATIGUE [None]
  - FEELING ABNORMAL [None]
  - FLAT AFFECT [None]
  - HYPERSOMNIA [None]
  - NAUSEA [None]
